FAERS Safety Report 5196177-3 (Version None)
Quarter: 2006Q4

REPORT INFORMATION
  Report Type: 
  Country: None (occurrence: None)
  Receive Date: 20061222
  Receipt Date: 20061213
  Transmission Date: 20070319
  Serious: Yes (Other)
  Sender: FDA-Public Use
  Company Number: 220010L06JPN

PATIENT
  Age: 30 Year
  Sex: Male

DRUGS (1)
  1. SOMATROPIN (SOMATROPIN) [Suspect]
     Indication: DWARFISM

REACTIONS (4)
  - BLOOD URINE PRESENT [None]
  - FOCAL GLOMERULOSCLEROSIS [None]
  - HYPOTHALAMO-PITUITARY DISORDERS [None]
  - PRIMARY HYPOTHYROIDISM [None]
